FAERS Safety Report 4897933-9 (Version None)
Quarter: 2006Q1

REPORT INFORMATION
  Report Type: 
  Country: None (occurrence: None)
  Receive Date: 20060201
  Receipt Date: 20060125
  Transmission Date: 20060701
  Serious: Yes (Hospitalization, Disabling)
  Sender: FDA-Public Use
  Company Number: GB-BRISTOL-MYERS SQUIBB COMPANY-13259544

PATIENT
  Age: 36 Year
  Sex: Female
  Weight: 72 kg

DRUGS (5)
  1. PACLITAXEL [Suspect]
     Indication: BREAST CANCER
     Dates: start: 20060106, end: 20060106
  2. DICLOFENAC [Concomitant]
     Indication: PAIN
     Route: 048
     Dates: start: 20060108
  3. TRAMADOL HCL [Concomitant]
     Indication: PAIN
     Route: 048
     Dates: start: 20060108
  4. LACTULOSE [Concomitant]
     Indication: CONSTIPATION
     Route: 048
     Dates: start: 20060108
  5. SENNA [Concomitant]
     Indication: CONSTIPATION
     Route: 048
     Dates: start: 20060108

REACTIONS (4)
  - ABDOMINAL PAIN [None]
  - BONE PAIN [None]
  - CONSTIPATION [None]
  - PYREXIA [None]
